FAERS Safety Report 18370034 (Version 2)
Quarter: 2020Q4

REPORT INFORMATION
  Report Type: Report from Study
  Country: ES (occurrence: ES)
  Receive Date: 20201012
  Receipt Date: 20201024
  Transmission Date: 20210114
  Serious: Yes (Hospitalization)
  Sender: FDA-Public Use
  Company Number: ES-ROCHE-2690683

PATIENT
  Age: 62 Year
  Sex: Female
  Weight: 62.8 kg

DRUGS (5)
  1. BEVACIZUMAB. [Suspect]
     Active Substance: BEVACIZUMAB
     Indication: PLEURAL MESOTHELIOMA MALIGNANT
     Dosage: ON 30/JUL/2020, SHE HAD RECEIVED LAST DOSE OF ADMINISTRATION BEFORE SAE.
     Route: 042
     Dates: start: 20200319
  2. PEMETREXED. [Suspect]
     Active Substance: PEMETREXED
     Indication: PLEURAL MESOTHELIOMA MALIGNANT
     Dosage: ON 07/JUL/2020, SHE HAD RECEIVED LAST DOSE OF PEMETREXED
     Route: 042
     Dates: start: 20200319
  3. CARBOPLATIN. [Suspect]
     Active Substance: CARBOPLATIN
     Indication: PLEURAL MESOTHELIOMA MALIGNANT
     Dosage: ON 07/JUL/2020, SHE HAD RECEIVED LAST DOSE OF CARBOPLATIN
     Route: 042
     Dates: start: 20200319
  4. ATEZOLIZUMAB. [Suspect]
     Active Substance: ATEZOLIZUMAB
     Indication: PLEURAL MESOTHELIOMA MALIGNANT
     Dosage: ON 30/JUL/2020, SHE HAD RECEIVED LAST DOSE OF ADMINISTRATION BEFORE SAE.
     Route: 042
     Dates: start: 20200319
  5. CITALOPRAM [Concomitant]
     Active Substance: CITALOPRAM HYDROBROMIDE

REACTIONS (1)
  - Proctitis [Recovered/Resolved with Sequelae]

NARRATIVE: CASE EVENT DATE: 20200821
